FAERS Safety Report 13780598 (Version 1)
Quarter: 2017Q3

REPORT INFORMATION
  Report Type: Spontaneous
  Country: US (occurrence: US)
  Receive Date: 20170724
  Receipt Date: 20170724
  Transmission Date: 20171127
  Serious: No
  Sender: FDA-Public Use
  Company Number: US-PFIZER INC-2017313805

PATIENT
  Age: 50 Year
  Sex: Male
  Weight: 124.74 kg

DRUGS (3)
  1. VIAGRA [Suspect]
     Active Substance: SILDENAFIL CITRATE
     Indication: ERECTILE DYSFUNCTION
     Dosage: 100 MG, AS NEEDED
     Route: 048
     Dates: start: 201611, end: 201706
  2. LASIX [Concomitant]
     Active Substance: FUROSEMIDE
     Indication: FLUID RETENTION
     Dosage: DOES NOT KNOW DOSE, TABLET, BY MOUTH, ONCE IN THE MORNING
     Route: 048
     Dates: start: 2011
  3. METOPROLOL. [Concomitant]
     Active Substance: METOPROLOL
     Dosage: DOES NOT KNOW DOSE, TABLET, BY MOUTH, ONCE IN THE MORNING
     Route: 048

REACTIONS (1)
  - Erection increased [Recovered/Resolved]

NARRATIVE: CASE EVENT DATE: 201706
